FAERS Safety Report 22328111 (Version 1)
Quarter: 2023Q2

REPORT INFORMATION
  Report Type: Spontaneous
  Country: US (occurrence: US)
  Receive Date: 20230516
  Receipt Date: 20230516
  Transmission Date: 20230722
  Serious: Yes (Other)
  Sender: FDA-Public Use
  Company Number: US-JNJFOC-20230522718

PATIENT
  Sex: Female

DRUGS (1)
  1. ELMIRON [Suspect]
     Active Substance: PENTOSAN POLYSULFATE SODIUM
     Indication: Product used for unknown indication
     Route: 048

REACTIONS (4)
  - Macular degeneration [Unknown]
  - Maculopathy [Unknown]
  - Occipital neuralgia [Unknown]
  - Migraine [Unknown]

NARRATIVE: CASE EVENT DATE: 20210218
